FAERS Safety Report 7836857 (Version 4)
Quarter: 2012Q4

REPORT INFORMATION
  Report Type: Report from Study
  Country: DE (occurrence: DE)
  Receive Date: 20110302
  Receipt Date: 20121211
  Transmission Date: 20130627
  Serious: Yes (Death, Hospitalization, Other)
  Sender: FDA-Public Use
  Company Number: DE-ELI_LILLY_AND_COMPANY-DE201102006014

PATIENT
  Sex: Male
  Weight: 83.9 kg

DRUGS (16)
  1. PEMETREXED [Suspect]
     Indication: NON-SMALL CELL LUNG CANCER
     Dosage: 1000 mg, other
     Route: 042
     Dates: start: 20100929
  2. CISPLATIN [Suspect]
     Indication: NON-SMALL CELL LUNG CANCER
     Dosage: 150 mg, other
     Route: 042
     Dates: start: 20100929
  3. METOPROLOL [Concomitant]
     Indication: HYPERTENSION
     Dosage: 100 mg, UNK
     Dates: start: 2008
  4. RAMPRIL [Concomitant]
     Indication: HYPERTENSION
     Dosage: 2.5 MBq, UNK
     Dates: start: 2008
  5. SIMVASTATIN [Concomitant]
     Indication: HYPERCHOLESTEROLAEMIA
     Dosage: 40 mg, UNK
     Dates: start: 2008
  6. MOLSIDOMIN [Concomitant]
     Indication: CORONARY ARTERY DISEASE
     Dates: start: 2008
  7. HYDROCHLORZIDE [Concomitant]
     Indication: HYPERTENSION
     Dosage: 25 mg, UNK
     Dates: start: 2008
  8. MAGNESIUM HYDROGEN ASPARTATE [Concomitant]
     Indication: HYPOMAGNESAEMIA
     Dates: start: 20100928
  9. TRAMADOL [Concomitant]
     Indication: TUMOUR PAIN
     Dosage: 50 mmol, UNK
     Dates: start: 20100928
  10. DICLOFENAC [Concomitant]
     Indication: TUMOUR PAIN
     Dosage: 50 mg, UNK
     Dates: start: 201008
  11. METAMIZOL                          /06276702/ [Concomitant]
     Indication: TUMOUR PAIN
     Dosage: 500 mg, UNK
     Dates: start: 201008
  12. ZOLPIDEM TARTRATE [Concomitant]
     Indication: INSOMNIA
     Dosage: 10 mg, UNK
     Dates: start: 20101020
  13. ACETYLSALICYLIC ACID [Concomitant]
     Indication: CORONARY ARTERY DISEASE
     Dosage: 100 mg, UNK
     Dates: start: 20101021
  14. MACROGOL [Concomitant]
     Dosage: UNK
     Dates: start: 201012
  15. CALCIUM CARBONATE [Concomitant]
     Indication: LUMBAR VERTEBRAL FRACTURE
     Dosage: UNK
     Dates: start: 20101214
  16. MAGNESIUM SULFATE [Concomitant]
     Indication: BLOOD MAGNESIUM DECREASED
     Dosage: UNK
     Dates: start: 20101224

REACTIONS (7)
  - Disease progression [Fatal]
  - Circulatory collapse [Recovered/Resolved]
  - Leukopenia [Recovered/Resolved]
  - Flank pain [Not Recovered/Not Resolved]
  - Thrombocytopenia [Recovered/Resolved]
  - Hyponatraemia [Recovered/Resolved]
  - Thrombocytopenia [Recovered/Resolved]
